FAERS Safety Report 4958250-1 (Version None)
Quarter: 2006Q1

REPORT INFORMATION
  Report Type: 
  Country: None (occurrence: None)
  Receive Date: 20060330
  Receipt Date: 20060327
  Transmission Date: 20060701
  Serious: Yes (Hospitalization)
  Sender: FDA-Public Use
  Company Number: AT-GLAXOSMITHKLINE-B0418329A

PATIENT
  Age: 16 Year
  Sex: Female
  Weight: 50 kg

DRUGS (2)
  1. ZOVIRAX [Suspect]
     Dosage: 20MGK THREE TIMES PER DAY
     Route: 042
  2. FOSCARNET [Concomitant]
     Dosage: 60MGK THREE TIMES PER DAY
     Route: 042

REACTIONS (2)
  - CONDITION AGGRAVATED [None]
  - DRUG INEFFECTIVE [None]
